FAERS Safety Report 8970037 (Version 1)
Quarter: 2012Q4

REPORT INFORMATION
  Report Type: 
  Country: US (occurrence: US)
  Receive Date: 20121217
  Receipt Date: 20121217
  Transmission Date: 20130627
  Serious: Yes (Hospitalization, Other)
  Sender: FDA-Public Use
  Company Number: US-ELI_LILLY_AND_COMPANY-US201212002028

PATIENT
  Age: 48 Year
  Sex: Female
  Weight: 68.6 kg

DRUGS (7)
  1. CYMBALTA [Suspect]
     Dosage: 60 mg, qd
     Dates: start: 20070809
  2. CELEBREX [Concomitant]
     Dosage: 200 mg, bid
     Dates: start: 20030320
  3. OCRELIZUMAB [Concomitant]
     Indication: RHEUMATOID ARTHRITIS
     Dosage: 500 mg, qd
     Route: 042
     Dates: start: 20080320
  4. FOLIC ACID [Concomitant]
     Dosage: 1 mg, qd
     Dates: start: 20010803
  5. SOLU-MEDROL [Concomitant]
     Dosage: UNK
     Dates: start: 20080416
  6. BENADRYL [Concomitant]
     Dosage: UNK
     Dates: start: 20080416
  7. METHOTREXATE [Concomitant]
     Dosage: 15 mg, weekly (1/W)
     Dates: start: 20051118

REACTIONS (10)
  - Syncope [Unknown]
  - Loss of consciousness [Unknown]
  - Somnolence [Recovered/Resolved]
  - Nausea [Unknown]
  - Vomiting [Unknown]
  - Dizziness [Unknown]
  - Disorientation [Unknown]
  - Confusional state [Unknown]
  - Stupor [Unknown]
  - Mental status changes [Unknown]
